FAERS Safety Report 24762139 (Version 5)
Quarter: 2025Q2

REPORT INFORMATION
  Report Type: Spontaneous
  Country: US (occurrence: US)
  Receive Date: 20241221
  Receipt Date: 20250401
  Transmission Date: 20250716
  Serious: Yes (Other)
  Sender: GLAXOSMITHKLINE
  Company Number: US-GSK-US2024155398

PATIENT

DRUGS (2)
  1. BELIMUMAB [Suspect]
     Active Substance: BELIMUMAB
     Indication: Systemic lupus erythematosus
     Dosage: 200 MG, WE
     Route: 058
     Dates: start: 202201
  2. BELIMUMAB [Suspect]
     Active Substance: BELIMUMAB
     Indication: Cutaneous sarcoidosis

REACTIONS (9)
  - Spinal fracture [Not Recovered/Not Resolved]
  - Ankle fracture [Unknown]
  - Pain [Unknown]
  - Illness [Not Recovered/Not Resolved]
  - Road traffic accident [Unknown]
  - Swelling face [Recovered/Resolved]
  - Rash [Not Recovered/Not Resolved]
  - Product dose omission issue [Unknown]
  - Product use in unapproved indication [Unknown]

NARRATIVE: CASE EVENT DATE: 20240801
